FAERS Safety Report 10044983 (Version 2)
Quarter: 2014Q2

REPORT INFORMATION
  Report Type: Spontaneous
  Country: US (occurrence: US)
  Receive Date: 20140328
  Receipt Date: 20140519
  Transmission Date: 20141212
  Serious: No
  Sender: FDA-Public Use
  Company Number: US-009507513-1403USA010853

PATIENT
  Sex: Female
  Weight: 86.17 kg

DRUGS (1)
  1. DULERA [Suspect]
     Dosage: TWO PUFFS, BID
     Route: 055
     Dates: start: 2013

REACTIONS (3)
  - Drug dose omission [Unknown]
  - Product quality issue [Unknown]
  - No adverse event [Unknown]
